FAERS Safety Report 7422137-5 (Version None)
Quarter: 2011Q2

REPORT INFORMATION
  Report Type: 
  Country: None (occurrence: None)
  Receive Date: 20110418
  Receipt Date: 20091203
  Transmission Date: 20111010
  Serious: Yes (Other)
  Sender: FDA-Public Use
  Company Number: DE-GENENTECH-316868

PATIENT
  Sex: Female

DRUGS (1)
  1. LUCENTIS [Suspect]
     Indication: MACULAR DEGENERATION
     Dosage: UNK
     Route: 031
     Dates: start: 20091002

REACTIONS (4)
  - VISUAL ACUITY REDUCED [None]
  - SLEEP DISORDER [None]
  - INFLUENZA [None]
  - INTESTINAL FUNCTIONAL DISORDER [None]
